FAERS Safety Report 5822615-6 (Version None)
Quarter: 2008Q3

REPORT INFORMATION
  Report Type: 
  Country: None (occurrence: None)
  Receive Date: 20080725
  Receipt Date: 20080715
  Transmission Date: 20090109
  Serious: Yes (Other)
  Sender: FDA-Public Use
  Company Number: US-PURDUE-USA_2008_0033018

PATIENT
  Age: 71 Year
  Sex: Male

DRUGS (5)
  1. COLACE CAPSULES [Suspect]
     Indication: FAECES HARD
     Dosage: 1 CAPSL, DAILY
     Dates: start: 20080523, end: 20080524
  2. ENALAPRIL MALEATE [Concomitant]
     Dosage: 2.5 MG, UNK
  3. ISOSORBIDE DINITRATE [Concomitant]
     Dosage: 15 MG, DAILY
  4. TYLENOL [Concomitant]
  5. GOOD NEIGHBOR STOOL SOFTENER [Concomitant]

REACTIONS (3)
  - LIP SWELLING [None]
  - PHARYNGEAL OEDEMA [None]
  - SWOLLEN TONGUE [None]
